FAERS Safety Report 25409791 (Version 2)
Quarter: 2025Q3

REPORT INFORMATION
  Report Type: Report from Study
  Country: PK (occurrence: PK)
  Receive Date: 20250607
  Receipt Date: 20250711
  Transmission Date: 20251021
  Serious: Yes (Death, Life-Threatening, Hospitalization)
  Sender: AMGEN
  Company Number: IN-AMGEN-INDNI2025110407

PATIENT
  Sex: Male

DRUGS (2)
  1. BLINATUMOMAB [Suspect]
     Active Substance: BLINATUMOMAB
     Indication: B-cell type acute leukaemia
     Route: 040
     Dates: start: 20250212, end: 20250218
  2. BLINATUMOMAB [Suspect]
     Active Substance: BLINATUMOMAB
     Route: 040
     Dates: start: 20250219, end: 20250311

REACTIONS (5)
  - Headache [Fatal]
  - Pyrexia [Fatal]
  - Seizure [Fatal]
  - Altered state of consciousness [Fatal]
  - Epistaxis [Fatal]

NARRATIVE: CASE EVENT DATE: 20250327
